FAERS Safety Report 10186891 (Version 1)
Quarter: 2014Q2

REPORT INFORMATION
  Report Type: Spontaneous
  Country: US (occurrence: US)
  Receive Date: 20140522
  Receipt Date: 20140522
  Transmission Date: 20141212
  Serious: No
  Sender: FDA-Public Use
  Company Number: US-JNJFOC-20140506156

PATIENT
  Age: 57 Year
  Sex: Female
  Weight: 54.43 kg

DRUGS (5)
  1. FENTANYL [Suspect]
     Indication: INTERVERTEBRAL DISC DISORDER
     Route: 062
     Dates: start: 2013
  2. FENTANYL [Suspect]
     Indication: SPINAL OPERATION
     Route: 062
     Dates: start: 2013
  3. OXYCODONE [Concomitant]
     Indication: PAIN
     Route: 048
  4. SOMA [Concomitant]
     Indication: MUSCLE RELAXANT THERAPY
     Route: 048
  5. PHENERGAN [Concomitant]
     Indication: PAIN
     Route: 048

REACTIONS (4)
  - Poor quality drug administered [Not Recovered/Not Resolved]
  - Product quality issue [Not Recovered/Not Resolved]
  - Pain [Not Recovered/Not Resolved]
  - Nervousness [Not Recovered/Not Resolved]
